FAERS Safety Report 5501667-7 (Version None)
Quarter: 2007Q4

REPORT INFORMATION
  Report Type: 
  Country: None (occurrence: None)
  Receive Date: 20071022
  Receipt Date: 20070803
  Transmission Date: 20080405
  Serious: No
  Sender: FDA-Public Use
  Company Number: SPV1-2007-03750

PATIENT
  Age: 9 Year
  Sex: Female
  Weight: 29.5 kg

DRUGS (2)
  1. VYVANSE [Suspect]
     Dosage: 30 MG, 1X/DAY;QD, ORAL
     Route: 048
     Dates: start: 20070802
  2. SINGULAIR /0162602/ (MONTELUKAST SODIUM) TABLET [Concomitant]

REACTIONS (3)
  - CRYING [None]
  - HEADACHE [None]
  - PHARYNGEAL OEDEMA [None]
